FAERS Safety Report 8200431-8 (Version None)
Quarter: 2012Q1

REPORT INFORMATION
  Report Type: 
  Country: None (occurrence: None)
  Receive Date: 20120312
  Receipt Date: 20120301
  Transmission Date: 20120608
  Serious: Yes (Other)
  Sender: FDA-Public Use
  Company Number: US-RB-035834-12

PATIENT
  Age: 31 Year
  Sex: Female

DRUGS (1)
  1. MUCINEX DM [Suspect]
     Indication: PRODUCT USED FOR UNKNOWN INDICATION
     Dosage: TOOK PRODUCT FROM 21-FEB-2012 TILL 24-FEB-2012
     Route: 048

REACTIONS (6)
  - HEADACHE [None]
  - HYPERTENSION [None]
  - VOMITING [None]
  - ASTHENIA [None]
  - NAUSEA [None]
  - DRUG INEFFECTIVE [None]
